FAERS Safety Report 9458643 (Version 1)
Quarter: 2013Q3

REPORT INFORMATION
  Report Type: Spontaneous
  Country: US (occurrence: None)
  Receive Date: 20130813
  Receipt Date: 20130813
  Transmission Date: 20140515
  Serious: Yes (Other)
  Sender: FDA-Public Use
  Company Number: None

PATIENT
  Age: 76 Year
  Sex: Male

DRUGS (4)
  1. GLEEVEC [Suspect]
     Dosage: 400 MG  QD  PO
     Route: 048
     Dates: start: 20121005, end: 20130806
  2. GLEEVEC [Suspect]
     Dosage: 400 MG  QD  PO
     Route: 048
     Dates: start: 20121005, end: 20130806
  3. NEXIUM [Suspect]
  4. NEXIUM [Suspect]

REACTIONS (1)
  - Swelling face [None]
